FAERS Safety Report 8481535-1 (Version None)
Quarter: 2012Q3

REPORT INFORMATION
  Report Type: 
  Country: None (occurrence: None)
  Receive Date: 20120702
  Receipt Date: 20120625
  Transmission Date: 20120928
  Serious: Yes (Other)
  Sender: FDA-Public Use
  Company Number: US-BAYER-2012-064019

PATIENT
  Age: 41 Year
  Sex: Female
  Weight: 72.109 kg

DRUGS (7)
  1. MEDROL [Concomitant]
     Dosage: 4 M DOSE PAK
     Route: 048
  2. DURAFLU [Concomitant]
     Dosage: 60-20-200-500 MG
     Route: 048
  3. LODRANE D [Concomitant]
     Dosage: 8-90 MG/5 ML SUSPENSION
     Route: 048
  4. YAZ [Suspect]
  5. METOCLOPRAM [Concomitant]
     Dosage: 10 MG 1 TO 2 TABLET AM(MORNING) AND PM (NIGHT)
     Route: 048
  6. CEFDINIR [Concomitant]
     Dosage: 300 MG, UNK
     Route: 048
  7. ZEGERID [Concomitant]
     Dosage: 40-1.1 MG GRAM
     Route: 048

REACTIONS (1)
  - DEEP VEIN THROMBOSIS [None]
